FAERS Safety Report 4820682-X (Version None)
Quarter: 2005Q4

REPORT INFORMATION
  Report Type: 
  Country: None (occurrence: None)
  Receive Date: 20051104
  Receipt Date: 20051007
  Transmission Date: 20060501
  Serious: Yes (Hospitalization)
  Sender: FDA-Public Use
  Company Number: 2005UW15092

PATIENT
  Age: 56 Year
  Sex: Male
  Weight: 107.3 kg

DRUGS (16)
  1. CRESTOR [Suspect]
     Indication: HYPERLIPIDAEMIA
     Route: 048
     Dates: end: 20050727
  2. ANGIOMAX [Suspect]
     Indication: ACUTE CORONARY SYNDROME
     Route: 040
     Dates: start: 20050727, end: 20050727
  3. ANGIOMAX [Suspect]
     Route: 042
     Dates: start: 20050727, end: 20050727
  4. GLYCERYL TRINITRATE [Concomitant]
  5. ASPIRIN [Concomitant]
  6. METOPROLOL [Concomitant]
  7. PANTOPRAZOLE [Concomitant]
  8. ISOSORBIDE MONONITRATE [Concomitant]
  9. LORAZEPAM [Concomitant]
  10. MUPIROCIN OINTMENT [Concomitant]
  11. VANCOMYCIN [Concomitant]
  12. POTASSIUM CHLORIDE [Concomitant]
  13. HEPARIN [Concomitant]
  14. DIPHENHYDRAMINE HCL [Concomitant]
  15. MIDAZOLAM [Concomitant]
  16. FENTANYL [Concomitant]

REACTIONS (5)
  - HEPATIC CIRRHOSIS [None]
  - HEPATIC ENZYME INCREASED [None]
  - HEPATIC NEOPLASM [None]
  - HEPATIC NEOPLASM MALIGNANT [None]
  - HEPATITIS ALCOHOLIC [None]
